FAERS Safety Report 6517015-X (Version None)
Quarter: 2009Q4

REPORT INFORMATION
  Report Type: 
  Country: None (occurrence: None)
  Receive Date: 20091223
  Receipt Date: 20091216
  Transmission Date: 20100525
  Serious: Yes (Hospitalization)
  Sender: FDA-Public Use
  Company Number: GXKR2009PL12926

PATIENT
  Age: 17 Year
  Sex: Male

DRUGS (6)
  1. PREDNISONE TAB [Suspect]
     Indication: ACUTE MYELOID LEUKAEMIA
     Route: 065
  2. ASPARAGINASE [Suspect]
     Indication: ACUTE MYELOID LEUKAEMIA
     Dosage: 5000 U/M2 PER DOSE (3 DOSES IN THE FIRST INDUCTION)
     Route: 065
  3. ASPARAGINASE [Suspect]
     Dosage: 10000 U/M2 (FIRST DOSE DURING REINDUCTION)
     Route: 065
  4. DAUNORUBICIN [Concomitant]
     Indication: ACUTE MYELOID LEUKAEMIA
  5. VINCRISTINE [Concomitant]
     Indication: ACUTE MYELOID LEUKAEMIA
  6. DOXORUBICIN HCL [Concomitant]
     Indication: ACUTE MYELOID LEUKAEMIA

REACTIONS (5)
  - BLOOD DISORDER [None]
  - CEREBRAL ISCHAEMIA [None]
  - CONVULSION [None]
  - HEMIPLEGIA [None]
  - LOSS OF CONSCIOUSNESS [None]
